FAERS Safety Report 5879883 (Version 17)
Quarter: 2013Q2

REPORT INFORMATION
  Report Type: Spontaneous
  Country: US (occurrence: US)
  Receive Date: 20050915
  Receipt Date: 20130508
  Transmission Date: 20140414
  Serious: Yes (Other)
  Sender: FDA-Public Use
  Company Number: PHEH2005US09920

PATIENT
  Age: 52 Year
  Sex: Female
  Weight: 56.2 kg

DRUGS (25)
  1. ZOMETA [Suspect]
     Indication: METASTASES TO BONE
     Dosage: 4 MG
     Route: 042
     Dates: start: 20040615, end: 200601
  2. AMOXICILLIN [Concomitant]
     Indication: TRISMUS
     Dosage: 875 MG, BID
     Dates: start: 20050609, end: 20050624
  3. AMOXICILLIN [Concomitant]
     Dosage: 500 MG, TID
  4. AMOXICILLIN [Concomitant]
     Dosage: 500 MG, TID
  5. AMOXICILLIN [Concomitant]
     Dosage: 500 MG, TID
  6. VINORELBINE [Concomitant]
     Dates: start: 20040720, end: 20040929
  7. GEMZAR [Concomitant]
     Dosage: 1.4 G
     Dates: start: 20040720, end: 20040929
  8. TAXOTERE [Concomitant]
     Dosage: 120 MG, QMO
     Dates: start: 20041022, end: 20050406
  9. LEVOQUIN [Concomitant]
  10. PERIDEX [Concomitant]
  11. XELODA [Concomitant]
     Indication: BREAST CANCER METASTATIC
     Dosage: 2500 MG/M2
  12. BUSPAR [Concomitant]
     Dosage: 4 MG, BID
  13. CAPECITABINE [Concomitant]
  14. OXYCODONE [Concomitant]
  15. NEUPOGEN [Concomitant]
  16. FAMVIR [Concomitant]
     Dosage: 500 MG, BID
     Route: 048
  17. WELLBUTRIN [Concomitant]
  18. LORAZEPAM [Concomitant]
     Dosage: 1 MG, BID
  19. SENOKOT                                 /UNK/ [Concomitant]
     Dosage: 100 MG, BID
  20. DIOVAN [Concomitant]
     Dosage: 80 MG, QD
  21. HYDROCODONE [Concomitant]
  22. MULTIVITAMINS [Concomitant]
  23. CALCIUM [Concomitant]
     Dosage: 600 MG, QD
  24. TYLENOL [Concomitant]
  25. DOCUSATE SODIUM [Concomitant]
     Dosage: 100 MG, BID

REACTIONS (73)
  - Pneumonitis [Unknown]
  - Hepatic cirrhosis [Unknown]
  - Splenomegaly [Unknown]
  - Renal cyst [Unknown]
  - Osteonecrosis of jaw [Not Recovered/Not Resolved]
  - Cellulitis [Unknown]
  - Soft tissue infection [Recovered/Resolved]
  - Trismus [Recovered/Resolved]
  - Swelling [Recovered/Resolved]
  - Weight decreased [Not Recovered/Not Resolved]
  - Pain in jaw [Recovered/Resolved]
  - Hypophagia [Not Recovered/Not Resolved]
  - Bone disorder [Unknown]
  - Osteomyelitis [Unknown]
  - Primary sequestrum [Unknown]
  - Gingival infection [Unknown]
  - Purulence [Unknown]
  - Gingival erythema [Unknown]
  - Paraesthesia [Unknown]
  - Impaired healing [Unknown]
  - Pain [Unknown]
  - Lymph node pain [Unknown]
  - Deformity [Unknown]
  - Emotional distress [Unknown]
  - Anxiety [Unknown]
  - General physical health deterioration [Unknown]
  - Decreased interest [Unknown]
  - Life expectancy shortened [Unknown]
  - Joint swelling [Recovering/Resolving]
  - Haemangioma [Unknown]
  - Osteolysis [Unknown]
  - Intervertebral disc protrusion [Unknown]
  - Pleural effusion [Not Recovered/Not Resolved]
  - Atelectasis [Unknown]
  - Dyspnoea [Unknown]
  - Spinal disorder [Unknown]
  - Lymphadenopathy [Unknown]
  - Metastases to bone [Unknown]
  - Osteosclerosis [Unknown]
  - Hepatic cyst [Unknown]
  - Metastases to spine [Unknown]
  - Pleural disorder [Unknown]
  - Lumbar spinal stenosis [Unknown]
  - Intervertebral disc degeneration [Unknown]
  - Osteoarthritis [Unknown]
  - Spinal osteoarthritis [Unknown]
  - Muscle spasms [Unknown]
  - Paraesthesia oral [Unknown]
  - Musculoskeletal pain [Unknown]
  - Diarrhoea [Unknown]
  - Toothache [Unknown]
  - Swelling face [Unknown]
  - Metastases to lymph nodes [Unknown]
  - Neutropenia [Unknown]
  - Major depression [Unknown]
  - Anaemia [Unknown]
  - Pharyngitis [Unknown]
  - Musculoskeletal chest pain [Unknown]
  - Tongue haemorrhage [Unknown]
  - Glossodynia [Unknown]
  - Back pain [Unknown]
  - Mental status changes [Unknown]
  - Hypokalaemia [Unknown]
  - Hallucination [Unknown]
  - Ataxia [Unknown]
  - Thrombocytopenia [Unknown]
  - Pancytopenia [Unknown]
  - Gait disturbance [Unknown]
  - Cerebral small vessel ischaemic disease [Unknown]
  - Lung infiltration [Unknown]
  - Abdominal distension [Unknown]
  - Ascites [Unknown]
  - Tachycardia [Unknown]
